FAERS Safety Report 14477678 (Version 1)
Quarter: 2018Q1

REPORT INFORMATION
  Report Type: Report from Study
  Country: US (occurrence: US)
  Receive Date: 20180201
  Receipt Date: 20180201
  Transmission Date: 20180509
  Serious: No
  Sender: FDA-Public Use
  Company Number: US-EXELIXIS-CABO-16007767

PATIENT
  Age: 71 Year
  Sex: Female

DRUGS (7)
  1. LEVOTHYROXINE. [Concomitant]
     Active Substance: LEVOTHYROXINE
  2. VITAMIN B12 [Concomitant]
     Active Substance: CYANOCOBALAMIN
  3. COMETRIQ [Suspect]
     Active Substance: CABOZANTINIB S-MALATE
     Dosage: 80 MG, QD, 2 WEEKS ON 1 WEEK OFF
     Route: 048
     Dates: start: 20161207
  4. COMETRIQ [Suspect]
     Active Substance: CABOZANTINIB S-MALATE
     Indication: GASTROINTESTINAL NEOPLASM
     Dosage: 80 MG, QD, 2 WEEKS ON 1 WEEK OFF
     Route: 048
     Dates: start: 201609, end: 2016
  5. NORVASC [Concomitant]
     Active Substance: AMLODIPINE BESYLATE
  6. COMETRIQ [Suspect]
     Active Substance: CABOZANTINIB S-MALATE
     Indication: THYROID CANCER
     Dosage: 140 MG, QD
     Route: 048
     Dates: start: 20140513, end: 20140629
  7. PANTOPRAZOLE [Concomitant]
     Active Substance: PANTOPRAZOLE

REACTIONS (5)
  - Muscle spasms [Unknown]
  - Feeling hot [Unknown]
  - Diarrhoea [Recovering/Resolving]
  - Medical procedure [Unknown]
  - Laceration [Not Recovered/Not Resolved]

NARRATIVE: CASE EVENT DATE: 20161122
